FAERS Safety Report 9701215 (Version 1)
Quarter: 2013Q4

REPORT INFORMATION
  Report Type: Spontaneous
  Country: US (occurrence: US)
  Receive Date: 20131121
  Receipt Date: 20131121
  Transmission Date: 20140711
  Serious: No
  Sender: FDA-Public Use
  Company Number: US-GILEAD-2008-0016073

PATIENT
  Sex: Female
  Weight: 81.65 kg

DRUGS (13)
  1. LETAIRIS [Suspect]
     Indication: PULMONARY ARTERIAL HYPERTENSION
     Route: 048
     Dates: start: 20080322
  2. JANUVIA [Concomitant]
     Route: 048
  3. PAXIL [Concomitant]
     Route: 048
  4. LASIX [Concomitant]
     Route: 048
  5. COUMADIN [Concomitant]
     Route: 048
  6. REVATIO [Concomitant]
     Route: 048
  7. LIPITOR [Concomitant]
     Route: 048
  8. QUINAPRIL [Concomitant]
     Route: 048
  9. AMIODARONE [Concomitant]
     Route: 048
  10. METFORMIN [Concomitant]
     Route: 048
  11. IRON [Concomitant]
     Route: 048
  12. ARICEPT [Concomitant]
     Route: 048
  13. OMEPRAZOLE [Concomitant]
     Route: 048

REACTIONS (1)
  - Tremor [Unknown]
